FAERS Safety Report 7469590-9 (Version None)
Quarter: 2011Q2

REPORT INFORMATION
  Report Type: 
  Country: None (occurrence: None)
  Receive Date: 20110429
  Receipt Date: 20110419
  Transmission Date: 20111010
  Serious: Yes (Other)
  Sender: FDA-Public Use
  Company Number: 1000019880

PATIENT
  Age: 84 Year
  Sex: Female
  Weight: 39 kg

DRUGS (2)
  1. MEMANTINE [Suspect]
     Indication: DEMENTIA ALZHEIMER'S TYPE
     Dosage: 5 MG (5 MG, 1 IN 1 D), ORAL
     Route: 048
     Dates: start: 20010310, end: 20110322
  2. ARICEPT [Concomitant]

REACTIONS (1)
  - RENAL IMPAIRMENT [None]
